FAERS Safety Report 20383217 (Version 2)
Quarter: 2022Q2

REPORT INFORMATION
  Report Type: Report from Study
  Country: EC (occurrence: None)
  Receive Date: 20220127
  Receipt Date: 20220418
  Transmission Date: 20220721
  Serious: Yes (Hospitalization)
  Sender: FDA-Public Use
  Company Number: EC-Merck Healthcare KGaA-9283453

PATIENT
  Age: 16 Year
  Sex: Female

DRUGS (2)
  1. REBIF [Interacting]
     Active Substance: INTERFERON BETA-1A
     Indication: Multiple sclerosis
     Route: 058
     Dates: start: 20210426
  2. REBIF [Interacting]
     Active Substance: INTERFERON BETA-1A
     Dosage: RESTARTED ON UNKNOWN DATE
     Route: 058

REACTIONS (3)
  - Tachycardia [Unknown]
  - Drug interaction [Unknown]
  - Multiple sclerosis relapse [Recovering/Resolving]

NARRATIVE: CASE EVENT DATE: 20211103
